FAERS Safety Report 14753722 (Version 1)
Quarter: 2018Q2

REPORT INFORMATION
  Report Type: Spontaneous
  Country: US (occurrence: US)
  Receive Date: 20180412
  Receipt Date: 20180412
  Transmission Date: 20180711
  Serious: Yes (Other)
  Sender: FDA-Public Use
  Company Number: US-LEITERS-2045687

PATIENT
  Age: 80 Year
  Sex: Male

DRUGS (1)
  1. BEVACIZUMAB 25 MG/ML (2.5 MG/0.1 ML) REPACK INJECTION, 0.1 ML IN 1 ML [Suspect]
     Active Substance: BEVACIZUMAB
     Indication: AGE-RELATED MACULAR DEGENERATION
     Route: 047
     Dates: start: 20180404, end: 20180404

REACTIONS (1)
  - Endophthalmitis [Recovering/Resolving]

NARRATIVE: CASE EVENT DATE: 20180405
